FAERS Safety Report 14233111 (Version 1)
Quarter: 2017Q4

REPORT INFORMATION
  Report Type: Report from Study
  Country: US (occurrence: US)
  Receive Date: 20171128
  Receipt Date: 20171128
  Transmission Date: 20180321
  Serious: Yes (Life-Threatening, Hospitalization)
  Sender: FDA-Public Use
  Company Number: US-ACTELION-A-NJ2017-151482

PATIENT
  Age: 53 Year
  Sex: Female
  Weight: 53.61 kg

DRUGS (4)
  1. TRACLEER [Suspect]
     Active Substance: BOSENTAN
     Indication: PULMONARY ARTERIAL HYPERTENSION
     Dosage: 125 MG, BID
     Route: 048
     Dates: start: 2008
  2. REVATIO [Concomitant]
     Active Substance: SILDENAFIL CITRATE
  3. PROTONIX [Concomitant]
     Active Substance: PANTOPRAZOLE SODIUM
     Dosage: UNK
  4. ADEMPAS [Concomitant]
     Active Substance: RIOCIGUAT

REACTIONS (21)
  - Productive cough [Unknown]
  - Muscle strain [Unknown]
  - Pulmonary embolism [Not Recovered/Not Resolved]
  - Drug hypersensitivity [Recovered/Resolved]
  - Nasal congestion [Unknown]
  - Feeling cold [Unknown]
  - Headache [Unknown]
  - Blood magnesium decreased [Recovering/Resolving]
  - Sneezing [Unknown]
  - Musculoskeletal pain [Unknown]
  - Musculoskeletal discomfort [Unknown]
  - Confusional state [Not Recovered/Not Resolved]
  - Feeling hot [Unknown]
  - Neck pain [Unknown]
  - Vision blurred [Unknown]
  - Muscle twitching [Unknown]
  - Unevaluable event [Unknown]
  - Chest pain [Recovering/Resolving]
  - Dizziness [Unknown]
  - Vertigo [Unknown]
  - Fluid retention [Recovering/Resolving]

NARRATIVE: CASE EVENT DATE: 2017
